FAERS Safety Report 12231314 (Version 2)
Quarter: 2017Q1

REPORT INFORMATION
  Report Type: Spontaneous
  Country: US (occurrence: US)
  Receive Date: 20160401
  Receipt Date: 20170124
  Transmission Date: 20170428
  Serious: No
  Sender: FDA-Public Use
  Company Number: US-APOTEX-2016AP006561

PATIENT
  Sex: Female
  Weight: 57 kg

DRUGS (9)
  1. WELLBUTRIN [Suspect]
     Active Substance: BUPROPION HYDROCHLORIDE
     Dosage: 20 MG, UNK
     Route: 065
  2. SYNTHROID [Concomitant]
     Active Substance: LEVOTHYROXINE SODIUM
     Indication: HYPOTHYROIDISM
     Dosage: UNK
     Route: 065
     Dates: start: 1997
  3. PROZAC [Suspect]
     Active Substance: FLUOXETINE HYDROCHLORIDE
     Indication: PRODUCT USED FOR UNKNOWN INDICATION
     Dosage: UNK, UNKNOWN
     Route: 065
  4. WELLBUTRIN [Suspect]
     Active Substance: BUPROPION HYDROCHLORIDE
     Dosage: UNK
     Route: 065
     Dates: start: 2013
  5. WELLBUTRIN [Suspect]
     Active Substance: BUPROPION HYDROCHLORIDE
     Indication: PRODUCT USED FOR UNKNOWN INDICATION
     Dosage: 40 MG, UNK
     Route: 065
  6. CELEXA [Suspect]
     Active Substance: CITALOPRAM HYDROBROMIDE
     Indication: PRODUCT USED FOR UNKNOWN INDICATION
     Dosage: 60 MG, UNKNOWN
     Route: 065
     Dates: start: 2002
  7. WELLBUTRIN [Suspect]
     Active Substance: BUPROPION HYDROCHLORIDE
     Dosage: 30 MG, UNK
     Route: 065
  8. ALPRAZOLAM. [Concomitant]
     Active Substance: ALPRAZOLAM
     Indication: SLEEP DISORDER
     Dosage: 0.5 MG, Q.H.S.
     Route: 065
     Dates: start: 1999
  9. PAXIL [Suspect]
     Active Substance: PAROXETINE HYDROCHLORIDE
     Indication: PRODUCT USED FOR UNKNOWN INDICATION
     Dosage: UNK UNK, UNKNOWN
     Route: 065
     Dates: start: 201206

REACTIONS (10)
  - Weight increased [Unknown]
  - Hypersomnia [Unknown]
  - Drug ineffective [Unknown]
  - Somnolence [Unknown]
  - Weight decreased [Unknown]
  - Aggression [Unknown]
  - Anger [Unknown]
  - Mood altered [Unknown]
  - Anxiety [Unknown]
  - Violence-related symptom [Unknown]
